FAERS Safety Report 9688053 (Version 3)
Quarter: 2013Q4

REPORT INFORMATION
  Report Type: Spontaneous
  Country: BR (occurrence: BR)
  Receive Date: 20131114
  Receipt Date: 20131126
  Transmission Date: 20140711
  Serious: Yes (Death)
  Sender: FDA-Public Use
  Company Number: BR-MPIJNJ-2013JNJ001012

PATIENT
  Sex: 0

DRUGS (1)
  1. VELCADE [Suspect]
     Indication: PLASMA CELL MYELOMA
     Dosage: UNK
     Route: 065
     Dates: start: 201302

REACTIONS (1)
  - Death [Fatal]
